FAERS Safety Report 25510033 (Version 2)
Quarter: 2025Q3

REPORT INFORMATION
  Report Type: Spontaneous
  Country: US (occurrence: US)
  Receive Date: 20250703
  Receipt Date: 20250807
  Transmission Date: 20251021
  Serious: No
  Sender: BridgeBio Pharma
  Company Number: US-BRIDGEBIO-25US000723

PATIENT

DRUGS (1)
  1. ATTRUBY [Suspect]
     Active Substance: ACORAMIDIS HYDROCHLORIDE
     Indication: Product used for unknown indication
     Route: 065
     Dates: start: 20250428

REACTIONS (11)
  - Diarrhoea [Recovered/Resolved]
  - Abdominal discomfort [Recovered/Resolved]
  - Syncope [Recovered/Resolved]
  - Blood pressure increased [Unknown]
  - Irritability [Unknown]
  - Neuralgia [Unknown]
  - Flatulence [Unknown]
  - Therapy interrupted [Unknown]
  - Therapeutic response unexpected [Unknown]
  - Product packaging quantity issue [Unknown]
  - Product use issue [Unknown]

NARRATIVE: CASE EVENT DATE: 20250625
